FAERS Safety Report 13999063 (Version 3)
Quarter: 2017Q4

REPORT INFORMATION
  Report Type: Spontaneous
  Country: US (occurrence: US)
  Receive Date: 20170922
  Receipt Date: 20171124
  Transmission Date: 20180321
  Serious: No
  Sender: FDA-Public Use
  Company Number: US-BRISTOL-MYERS SQUIBB COMPANY-BMS-2017-083753

PATIENT
  Sex: Male
  Weight: 72.5 kg

DRUGS (2)
  1. ELIQUIS [Suspect]
     Active Substance: APIXABAN
     Indication: DEEP VEIN THROMBOSIS
     Dosage: 4 TAB, QD
     Route: 048
     Dates: start: 201706, end: 201706
  2. ELIQUIS [Suspect]
     Active Substance: APIXABAN
     Indication: PRODUCT USED FOR UNKNOWN INDICATION
     Dosage: 2 TAB, QD
     Route: 048

REACTIONS (13)
  - Hyperchlorhydria [Unknown]
  - Malaise [Unknown]
  - Arthralgia [Unknown]
  - Influenza like illness [Unknown]
  - Palpitations [Unknown]
  - Fatigue [Unknown]
  - Off label use [Unknown]
  - Adverse event [Unknown]
  - Product label issue [Unknown]
  - Headache [Unknown]
  - Asthenia [Unknown]
  - Tinnitus [Unknown]
  - Influenza [Unknown]
